FAERS Safety Report 13638167 (Version 1)
Quarter: 2017Q2

REPORT INFORMATION
  Report Type: Report from Study
  Country: CA (occurrence: CA)
  Receive Date: 20170609
  Receipt Date: 20170609
  Transmission Date: 20170830
  Serious: Yes (Hospitalization, Other)
  Sender: FDA-Public Use
  Company Number: CA-009507513-1610CAN001943

PATIENT
  Age: 36 Year
  Sex: Male

DRUGS (2)
  1. POSANOL [Suspect]
     Active Substance: POSACONAZOLE
     Indication: HISTIOCYTOSIS HAEMATOPHAGIC
     Dosage: 300 MG, QD
     Route: 048
     Dates: start: 2016
  2. POSANOL [Suspect]
     Active Substance: POSACONAZOLE
     Indication: HISTIOCYTOSIS HAEMATOPHAGIC
     Dosage: 200 MG, QD
     Route: 048
     Dates: start: 201611

REACTIONS (8)
  - Fatigue [Unknown]
  - Product use in unapproved indication [Unknown]
  - Memory impairment [Unknown]
  - Gastroenteritis [Unknown]
  - Accidental overdose [Unknown]
  - Bone marrow transplant [Unknown]
  - Adverse event [Unknown]
  - Influenza [Unknown]

NARRATIVE: CASE EVENT DATE: 2016
